FAERS Safety Report 23328966 (Version 1)
Quarter: 2023Q4

REPORT INFORMATION
  Report Type: Spontaneous
  Country: US (occurrence: US)
  Receive Date: 20231222
  Receipt Date: 20231222
  Transmission Date: 20240109
  Serious: No
  Sender: FDA-Public Use
  Company Number: US-AUROBINDO-AUR-APL-2023-075174

PATIENT
  Sex: Female

DRUGS (1)
  1. LEUPROLIDE [Suspect]
     Active Substance: LEUPROLIDE
     Indication: Product used for unknown indication
     Dosage: UNK
     Route: 065

REACTIONS (1)
  - Allergic reaction to excipient [Unknown]
